FAERS Safety Report 5318492-2 (Version None)
Quarter: 2007Q2

REPORT INFORMATION
  Report Type: 
  Country: None (occurrence: None)
  Receive Date: 20070501
  Receipt Date: 20070419
  Transmission Date: 20071010
  Serious: Yes (Hospitalization, Other)
  Sender: FDA-Public Use
  Company Number: 2006-02929

PATIENT
  Age: 73 Year
  Sex: Male
  Weight: 90 kg

DRUGS (2)
  1. VELCADE [Suspect]
     Indication: MYELODYSPLASTIC SYNDROME
     Dosage: 3.08 MG, INTRAVENOUS
     Route: 042
     Dates: start: 20061023, end: 20061102
  2. CYTARABINE (CYTARABINE) INFUSION [Suspect]
     Indication: MYELODYSPLASTIC SYNDROME
     Dosage: 20.50 MG, INTRAVENOUS
     Route: 042
     Dates: start: 20061023, end: 20061102

REACTIONS (5)
  - BLOOD CULTURE POSITIVE [None]
  - FEBRILE NEUTROPENIA [None]
  - STAPHYLOCOCCAL INFECTION [None]
  - VENOUS INJURY [None]
  - VESSEL PUNCTURE SITE HAEMATOMA [None]
